FAERS Safety Report 4532674-9 (Version None)
Quarter: 2004Q4

REPORT INFORMATION
  Report Type: 
  Country: None (occurrence: None)
  Receive Date: 20041221
  Receipt Date: 20040820
  Transmission Date: 20050328
  Serious: Yes (Death, Life-Threatening)
  Sender: FDA-Public Use
  Company Number: DE-NOVOPROD-238779

PATIENT
  Age: 55 Year
  Sex: Male
  Weight: 62 kg

DRUGS (5)
  1. NOVOSEVEN [Suspect]
     Indication: HAEMORRHAGE
     Dosage: 120 KIU
     Route: 042
     Dates: start: 20031007, end: 20031007
  2. NOVOSEVEN [Suspect]
     Dosage: 360 KIU
     Route: 042
     Dates: start: 20031007, end: 20031007
  3. ANVITOFF [Concomitant]
     Dates: start: 20031006, end: 20031006
  4. ANVITOFF [Concomitant]
     Dosage: 500 MG, QD
     Dates: start: 20031007, end: 20031007
  5. HAEMOCOMPLETTAN HS [Concomitant]
     Dosage: 3 G, QD
     Dates: start: 20031007, end: 20031007

REACTIONS (9)
  - ARRHYTHMIA [None]
  - CATHETER RELATED COMPLICATION [None]
  - GENERAL PHYSICAL HEALTH DETERIORATION [None]
  - HAEMODYNAMIC INSTABILITY [None]
  - POST PROCEDURAL COMPLICATION [None]
  - PROCEDURAL HYPOTENSION [None]
  - PULMONARY EMBOLISM [None]
  - PULMONARY OEDEMA [None]
  - SHOCK [None]
